FAERS Safety Report 6231869-6 (Version None)
Quarter: 2009Q2

REPORT INFORMATION
  Report Type: 
  Country: None (occurrence: None)
  Receive Date: 20090612
  Receipt Date: 20090612
  Transmission Date: 20091009
  Serious: Yes (Hospitalization)
  Sender: FDA-Public Use
  Company Number: None

PATIENT
  Age: 80 Year
  Sex: Female
  Weight: 80 kg

DRUGS (6)
  1. PLAVIX [Suspect]
     Dosage: 75 MG QD PO
     Route: 048
     Dates: start: 20090119, end: 20090202
  2. ASPIRIN [Suspect]
     Dosage: 325 MG QD PO
     Route: 048
     Dates: start: 20090119, end: 20090201
  3. TOPROL-XL [Concomitant]
  4. LISINOPRIL [Concomitant]
  5. LIPITOR [Concomitant]
  6. STROVITE [Concomitant]

REACTIONS (3)
  - HAEMOGLOBIN DECREASED [None]
  - INTERNATIONAL NORMALISED RATIO INCREASED [None]
  - RETROPERITONEAL HAEMATOMA [None]
